FAERS Safety Report 10229548 (Version 2)
Quarter: 2014Q2

REPORT INFORMATION
  Report Type: Spontaneous
  Country: US (occurrence: US)
  Receive Date: 20140611
  Receipt Date: 20140619
  Transmission Date: 20141212
  Serious: No
  Sender: FDA-Public Use
  Company Number: US-TEVA-487643USA

PATIENT
  Age: 40 Year
  Sex: Female
  Weight: 81.72 kg

DRUGS (3)
  1. TAKE ACTION [Suspect]
     Indication: POST COITAL CONTRACEPTION
     Dosage: 1.5 MILLIGRAM DAILY;
     Route: 048
     Dates: start: 20140524, end: 20140524
  2. SEASONIQUE [Concomitant]
     Indication: CONTRACEPTION
  3. LISINOPRIL [Concomitant]
     Indication: HYPERTENSION

REACTIONS (1)
  - Joint swelling [Recovered/Resolved]
